FAERS Safety Report 16768248 (Version 2)
Quarter: 2019Q3

REPORT INFORMATION
  Report Type: Spontaneous
  Country: AT (occurrence: AT)
  Receive Date: 20190903
  Receipt Date: 20190924
  Transmission Date: 20191005
  Serious: Yes (Life-Threatening, Hospitalization, Other)
  Sender: FDA-Public Use
  Company Number: PHHY2018AT167453

PATIENT
  Sex: Female

DRUGS (22)
  1. CONCOR COR [Concomitant]
     Active Substance: BISOPROLOL FUMARATE
     Indication: PRODUCT USED FOR UNKNOWN INDICATION
     Dosage: UNK UNK, BID (MORNING AND EVENING)
     Route: 048
  2. LIXIANA [Concomitant]
     Active Substance: EDOXABAN TOSYLATE
     Indication: THROMBOSIS PROPHYLAXIS
     Dosage: 60 MG, QD
     Route: 065
  3. TAXOL [Suspect]
     Active Substance: PACLITAXEL
     Indication: FALLOPIAN TUBE NEOPLASM
     Dosage: UNK
     Route: 065
     Dates: start: 20180821
  4. TAXOTERE [Suspect]
     Active Substance: DOCETAXEL
     Indication: ADENOCARCINOMA
  5. AVASTIN [Suspect]
     Active Substance: BEVACIZUMAB
     Indication: FALLOPIAN TUBE NEOPLASM
     Dosage: 7.5 MG/KG, UNK
     Route: 065
     Dates: start: 20190128
  6. LANITOP [Concomitant]
     Active Substance: METILDIGOXIN
     Indication: TACHYCARDIA
     Route: 065
  7. IRUXOLUM-MONO [Concomitant]
     Indication: WOUND DEHISCENCE
     Route: 065
  8. PANTOPRAZOL [Concomitant]
     Active Substance: PANTOPRAZOLE SODIUM
     Indication: PRODUCT USED FOR UNKNOWN INDICATION
     Dosage: UNK UNK, QD (MORNING)
     Route: 048
  9. CARBOPLATIN. [Suspect]
     Active Substance: CARBOPLATIN
     Indication: FALLOPIAN TUBE NEOPLASM
     Dosage: UNK
     Route: 065
     Dates: start: 20180821
  10. AVASTIN [Suspect]
     Active Substance: BEVACIZUMAB
     Indication: ADENOCARCINOMA
  11. MAGNONORM [Concomitant]
     Active Substance: MAGNESIUM
     Indication: PRODUCT USED FOR UNKNOWN INDICATION
     Dosage: UNK UNK, QD (MORNING)
     Route: 048
  12. CARBOPLATIN ACCORD [Suspect]
     Active Substance: CARBOPLATIN
     Indication: PRODUCT USED FOR UNKNOWN INDICATION
     Dosage: UNK
     Route: 065
  13. TAXOTERE [Suspect]
     Active Substance: DOCETAXEL
     Indication: FALLOPIAN TUBE NEOPLASM
     Route: 065
  14. EBETAXEL [Suspect]
     Active Substance: PACLITAXEL
     Indication: ADENOCARCINOMA
  15. CARBOPLATIN. [Suspect]
     Active Substance: CARBOPLATIN
     Indication: ADENOCARCINOMA
     Dosage: UNK
     Route: 065
     Dates: start: 20180912
  16. TAXOL [Suspect]
     Active Substance: PACLITAXEL
     Indication: ADENOCARCINOMA
  17. SEDACORON [Concomitant]
     Active Substance: AMIODARONE HYDROCHLORIDE
     Indication: PRODUCT USED FOR UNKNOWN INDICATION
     Dosage: UNK UNK, QD (MORNING)
     Route: 048
  18. OLEOVIT D3 [Concomitant]
     Active Substance: CHOLECALCIFEROL
     Indication: PRODUCT USED FOR UNKNOWN INDICATION
     Dosage: 7 OT, QD (7 IN MORNING)
     Route: 048
  19. EBETAXEL [Suspect]
     Active Substance: PACLITAXEL
     Indication: FALLOPIAN TUBE NEOPLASM
     Dosage: UNK
     Route: 065
     Dates: start: 20180912
  20. XARELTO [Concomitant]
     Active Substance: RIVAROXABAN
     Indication: THROMBOSIS PROPHYLAXIS
     Dosage: 15 MG, BID (MORNING AND EVENING)
     Route: 048
  21. NORVASC [Concomitant]
     Active Substance: AMLODIPINE BESYLATE
     Indication: PRODUCT USED FOR UNKNOWN INDICATION
     Dosage: UNK UNK, QD (MORNING)
     Route: 048
  22. FENISTIL [Concomitant]
     Active Substance: DIMETHINDENE
     Indication: ABDOMINAL INJURY
     Route: 065

REACTIONS (39)
  - Vomiting [Unknown]
  - Urinary incontinence [Unknown]
  - Rhinitis [Unknown]
  - Bronchitis [Unknown]
  - Leukopenia [Unknown]
  - Anaemia [Unknown]
  - Thrombocytopenia [Unknown]
  - Respiratory tract infection [Recovered/Resolved]
  - Brain natriuretic peptide decreased [Unknown]
  - Micturition urgency [Unknown]
  - Fatigue [Unknown]
  - Cough [Unknown]
  - Febrile neutropenia [Unknown]
  - General physical health deterioration [Unknown]
  - Nausea [Recovering/Resolving]
  - Hypokalaemia [Unknown]
  - Paraesthesia [Recovering/Resolving]
  - Stomatitis [Unknown]
  - Nail discolouration [Unknown]
  - Productive cough [Unknown]
  - Neuropathy peripheral [Recovering/Resolving]
  - Gait disturbance [Unknown]
  - Oral candidiasis [Unknown]
  - Genital candidiasis [Unknown]
  - Neutropenia [Unknown]
  - Muscular weakness [Unknown]
  - Influenza like illness [Unknown]
  - Drug intolerance [Unknown]
  - Skin exfoliation [Unknown]
  - Oedema peripheral [Unknown]
  - Erythema [Unknown]
  - Constipation [Unknown]
  - Haematoma [Unknown]
  - Asthenia [Unknown]
  - Dizziness [Unknown]
  - Faecaloma [Unknown]
  - Bowel movement irregularity [Unknown]
  - Oropharyngeal pain [Unknown]
  - Vulvovaginal candidiasis [Unknown]

NARRATIVE: CASE EVENT DATE: 201809
